FAERS Safety Report 17801777 (Version 1)
Quarter: 2020Q2

REPORT INFORMATION
  Report Type: Spontaneous
  Country: US (occurrence: US)
  Receive Date: 20200518
  Receipt Date: 20200518
  Transmission Date: 20200714
  Serious: No
  Sender: FDA-Public Use
  Company Number: None

PATIENT
  Age: 64 Year
  Sex: Male
  Weight: 83.25 kg

DRUGS (4)
  1. ZINC. [Concomitant]
     Active Substance: ZINC
  2. CLONAZEPAM. [Concomitant]
     Active Substance: CLONAZEPAM
  3. VALSARTAN. [Suspect]
     Active Substance: VALSARTAN
     Indication: HYPERTENSION
     Dosage: ?          QUANTITY:1 TABLET(S);?
     Route: 048
     Dates: start: 20200427, end: 20200517
  4. HYDROCHLOROTHIAZIDE. [Concomitant]
     Active Substance: HYDROCHLOROTHIAZIDE

REACTIONS (2)
  - Sunburn [None]
  - Photosensitivity reaction [None]

NARRATIVE: CASE EVENT DATE: 20200505
